FAERS Safety Report 17889997 (Version 1)
Quarter: 2020Q2

REPORT INFORMATION
  Report Type: Spontaneous
  Country: US (occurrence: US)
  Receive Date: 20200612
  Receipt Date: 20200612
  Transmission Date: 20200714
  Serious: Yes (Death)
  Sender: FDA-Public Use
  Company Number: US-FRESENIUS KABI-FK202005845

PATIENT
  Age: 38 Year
  Sex: Female

DRUGS (19)
  1. CYCLOPHOSPHAMIDE. [Suspect]
     Active Substance: CYCLOPHOSPHAMIDE
     Indication: LUPUS PNEUMONITIS
  2. CYCLOPHOSPHAMIDE. [Suspect]
     Active Substance: CYCLOPHOSPHAMIDE
     Indication: INFLUENZA
  3. PREDNISONE. [Suspect]
     Active Substance: PREDNISONE
     Indication: LUPUS PNEUMONITIS
     Dosage: ESCALATED TO 20 MG/DAY
  4. RIBAVIRIN. [Concomitant]
     Active Substance: RIBAVIRIN
     Indication: INFLUENZA
  5. PREDNISONE. [Suspect]
     Active Substance: PREDNISONE
     Indication: INFLUENZA
  6. METHYLPREDNISOLONE (MANUFACTURER UNKNOWN) [Suspect]
     Active Substance: METHYLPREDNISOLONE
     Indication: LUPUS PNEUMONITIS
     Dosage: INCREASED TO 60 MG/DAY
     Route: 065
  7. METHYLPREDNISOLONE (MANUFACTURER UNKNOWN) [Suspect]
     Active Substance: METHYLPREDNISOLONE
     Indication: INFLUENZA
  8. RIBAVIRIN. [Concomitant]
     Active Substance: RIBAVIRIN
     Indication: LUPUS PNEUMONITIS
  9. FLUDARABINE [Suspect]
     Active Substance: FLUDARABINE PHOSPHATE
     Indication: BONE MARROW CONDITIONING REGIMEN
     Route: 065
  10. OSELTAMIVIR [Concomitant]
     Active Substance: OSELTAMIVIR
     Indication: LUPUS PNEUMONITIS
  11. OSELTAMIVIR [Concomitant]
     Active Substance: OSELTAMIVIR
     Indication: INFLUENZA
  12. NO DRUG NAME [Concomitant]
     Active Substance: UNSPECIFIED INGREDIENT
     Indication: LUPUS PNEUMONITIS
  13. NO DRUG NAME [Concomitant]
     Active Substance: UNSPECIFIED INGREDIENT
     Indication: INFLUENZA
  14. ZANAMIVIR [Concomitant]
     Active Substance: ZANAMIVIR
     Indication: LUPUS PNEUMONITIS
  15. ZANAMIVIR [Concomitant]
     Active Substance: ZANAMIVIR
     Indication: INFLUENZA
  16. CETYLPYRIDINIUM CHLORIDE\SODIUM FLUORIDE [Concomitant]
     Active Substance: CETYLPYRIDINIUM CHLORIDE\SODIUM FLUORIDE
     Indication: LUPUS PNEUMONITIS
  17. CYCLOPHOSPHAMIDE. [Suspect]
     Active Substance: CYCLOPHOSPHAMIDE
     Indication: BONE MARROW CONDITIONING REGIMEN
     Route: 065
  18. RITUXIMAB. [Suspect]
     Active Substance: RITUXIMAB
     Indication: BONE MARROW CONDITIONING REGIMEN
     Route: 065
  19. CETYLPYRIDINIUM CHLORIDE\SODIUM FLUORIDE [Concomitant]
     Active Substance: CETYLPYRIDINIUM CHLORIDE\SODIUM FLUORIDE
     Indication: INFLUENZA

REACTIONS (2)
  - Pneumonia [Fatal]
  - Condition aggravated [Fatal]
